FAERS Safety Report 25768846 (Version 1)
Quarter: 2025Q3

REPORT INFORMATION
  Report Type: Spontaneous
  Country: GB (occurrence: GB)
  Receive Date: 20250905
  Receipt Date: 20250905
  Transmission Date: 20251021
  Serious: Yes (Hospitalization, Other)
  Sender: ELI LILLY AND COMPANY
  Company Number: None

PATIENT
  Age: 31 Year
  Sex: Female
  Weight: 93 kg

DRUGS (2)
  1. MOUNJARO [Suspect]
     Active Substance: TIRZEPATIDE
     Indication: Weight control
     Dosage: 15 MG, WEEKLY (1/W)
     Route: 065
     Dates: start: 20240801, end: 20250825
  2. DESOGESTREL [Concomitant]
     Active Substance: DESOGESTREL
     Indication: Endometriosis
     Dates: start: 20160101

REACTIONS (7)
  - Poor quality sleep [Recovered/Resolved]
  - Back pain [Recovered/Resolved]
  - Gastrointestinal pain [Recovered/Resolved]
  - Diarrhoea [Recovered/Resolved]
  - Vomiting [Recovered/Resolved]
  - Eructation [Recovered/Resolved]
  - Fatigue [Recovered/Resolved]
